FAERS Safety Report 7693397-0 (Version None)
Quarter: 2011Q3

REPORT INFORMATION
  Report Type: 
  Country: None (occurrence: None)
  Receive Date: 20110819
  Receipt Date: 20110805
  Transmission Date: 20111222
  Serious: Yes (Hospitalization)
  Sender: FDA-Public Use
  Company Number: US-ACTELION-A-NJ2011-52552

PATIENT

DRUGS (4)
  1. TADALAFIL [Concomitant]
  2. AMBRISENTAN [Concomitant]
  3. WARFARIN SODIUM [Concomitant]
  4. EPOPROSTENOL SODIUM [Suspect]
     Indication: PULMONARY ARTERIAL HYPERTENSION
     Dosage: 50 NG/KG, PER MIN
     Route: 041
     Dates: start: 20110711, end: 20110805

REACTIONS (9)
  - PNEUMONIA [None]
  - PYREXIA [None]
  - CHILLS [None]
  - DIARRHOEA [None]
  - INTERNATIONAL NORMALISED RATIO INCREASED [None]
  - ANAEMIA [None]
  - DEVICE RELATED SEPSIS [None]
  - THROMBOCYTOPENIA [None]
  - ABDOMINAL PAIN [None]
